FAERS Safety Report 15276594 (Version 1)
Quarter: 2018Q3

REPORT INFORMATION
  Report Type: Spontaneous
  Country: US (occurrence: US)
  Receive Date: 20180728
  Receipt Date: 20180728
  Transmission Date: 20181010
  Serious: Yes (Hospitalization)
  Sender: FDA-Public Use
  Company Number: None

PATIENT
  Sex: Male
  Weight: 84.28 kg

DRUGS (17)
  1. METOPROLOL XL [Concomitant]
     Active Substance: METOPROLOL SUCCINATE
  2. OMEGA?3 ACIDS [Concomitant]
     Active Substance: OMEGA-3 FATTY ACIDS
  3. LEUPROLIDE ACETATE. [Suspect]
     Active Substance: LEUPROLIDE ACETATE
     Dates: end: 20180615
  4. LOSARTAN. [Concomitant]
     Active Substance: LOSARTAN
  5. PRASUGREL. [Concomitant]
     Active Substance: PRASUGREL
  6. CASODEX [Suspect]
     Active Substance: BICALUTAMIDE
     Dates: end: 20180710
  7. MELATONIN [Concomitant]
     Active Substance: MELATONIN
  8. ASPIRIN. [Concomitant]
     Active Substance: ASPIRIN
  9. COENZYME Q10 [Concomitant]
     Active Substance: UBIDECARENONE
  10. ROSUVASTATIN. [Concomitant]
     Active Substance: ROSUVASTATIN
  11. SITAGLIPTIN [Concomitant]
     Active Substance: SITAGLIPTIN
  12. ADVIL PM [Concomitant]
     Active Substance: DIPHENHYDRAMINE CITRATE\IBUPROFEN
  13. METFORMIN [Concomitant]
     Active Substance: METFORMIN HYDROCHLORIDE
  14. MULTIVITAMIN [Concomitant]
     Active Substance: VITAMINS
  15. ADVIL [Concomitant]
     Active Substance: IBUPROFEN
  16. LORAZAPAM [Concomitant]
     Active Substance: LORAZEPAM
  17. AMLODIPINE [Concomitant]
     Active Substance: AMLODIPINE BESYLATE

REACTIONS (7)
  - Drug ineffective [None]
  - Haematuria [None]
  - Flatulence [None]
  - Nephrolithiasis [None]
  - Abdominal pain [None]
  - Ureterolithiasis [None]
  - Back pain [None]

NARRATIVE: CASE EVENT DATE: 20180710
